FAERS Safety Report 5804403-X (Version None)
Quarter: 2008Q3

REPORT INFORMATION
  Report Type: 
  Country: None (occurrence: None)
  Receive Date: 20080709
  Receipt Date: 20080410
  Transmission Date: 20090109
  Serious: No
  Sender: FDA-Public Use
  Company Number: US-BAYER-200819969NA

PATIENT
  Age: 24 Year
  Sex: Female

DRUGS (2)
  1. MIRENA [Suspect]
     Indication: DRUG USE FOR UNKNOWN INDICATION
     Route: 015
     Dates: start: 20080115, end: 20080221
  2. MIRENA [Suspect]
     Route: 015
     Dates: start: 20080221, end: 20080319

REACTIONS (4)
  - ABDOMINAL PAIN [None]
  - IUCD COMPLICATION [None]
  - MALAISE [None]
  - VAGINAL HAEMORRHAGE [None]
